FAERS Safety Report 8449460-X (Version None)
Quarter: 2012Q2

REPORT INFORMATION
  Report Type: 
  Country: None (occurrence: None)
  Receive Date: 20120619
  Receipt Date: 20120615
  Transmission Date: 20120825
  Serious: Yes (Hospitalization)
  Sender: FDA-Public Use
  Company Number: NL-AMGEN-NLDCT2012034145

PATIENT
  Age: 62 Year
  Sex: Female
  Weight: 83 kg

DRUGS (13)
  1. RITUXIMAB [Concomitant]
     Indication: DIFFUSE LARGE B-CELL LYMPHOMA
     Dosage: 750 MG, UNK
     Route: 042
     Dates: start: 20100419, end: 20100419
  2. VINCRISTINE [Concomitant]
     Indication: DIFFUSE LARGE B-CELL LYMPHOMA
     Dosage: 2 MG, UNK
     Dates: start: 20100419, end: 20100419
  3. TOLBUTAMIDE [Concomitant]
     Indication: DIABETES MELLITUS
     Dosage: 500 MG, TID
     Route: 048
     Dates: start: 20060101
  4. METOPROLOL SUCCINATE [Concomitant]
     Indication: ANGINA PECTORIS
     Dosage: 100 MG, QD
     Route: 048
  5. AMLODIPINE [Concomitant]
     Indication: ANGINA PECTORIS
     Dosage: 5 MG, QD
     Dates: end: 20100428
  6. PEGFILGRASTIM [Suspect]
     Indication: DIFFUSE LARGE B-CELL LYMPHOMA
     Dosage: 6 MG, UNK
     Route: 058
     Dates: start: 20110420, end: 20110420
  7. PREDNISONE TAB [Concomitant]
     Indication: DIFFUSE LARGE B-CELL LYMPHOMA
     Dosage: 100 MG, UNK
     Route: 048
     Dates: start: 20100419, end: 20100419
  8. ASCAL [Concomitant]
     Indication: THROMBOSIS
     Dosage: 100 MG, QD
     Route: 048
  9. DOXORUBICIN HCL [Concomitant]
     Indication: DIFFUSE LARGE B-CELL LYMPHOMA
     Dosage: 100 MG, UNK
     Route: 042
     Dates: start: 20110419, end: 20110419
  10. SIMVASTATIN [Concomitant]
     Dosage: 20 MG, QD
     Route: 048
  11. CYCLOPHOSPHAMIDE [Concomitant]
     Indication: DIFFUSE LARGE B-CELL LYMPHOMA
     Dosage: 1500 MG, UNK
     Route: 042
     Dates: start: 20100419, end: 20100419
  12. LISINOPRIL [Concomitant]
     Indication: MYOCARDIAL INFARCTION
     Dosage: UNK
     Route: 048
     Dates: end: 20110429
  13. CLOMIPRAMINE HCL [Concomitant]
     Indication: DEPRESSION
     Dosage: 25 MG, QD
     Route: 048
     Dates: end: 20110428

REACTIONS (1)
  - DEEP VEIN THROMBOSIS [None]
